FAERS Safety Report 10266161 (Version 1)
Quarter: 2014Q2

REPORT INFORMATION
  Report Type: Spontaneous
  Country: US (occurrence: US)
  Receive Date: 20140627
  Receipt Date: 20140627
  Transmission Date: 20141212
  Serious: Yes (Other)
  Sender: FDA-Public Use
  Company Number: US-LUNDBECK-DKLU1101250

PATIENT
  Sex: Male

DRUGS (5)
  1. SABRIL     (TABLET) [Suspect]
     Indication: STATUS EPILEPTICUS
     Route: 048
     Dates: start: 201404
  2. SABRIL     (TABLET) [Suspect]
     Indication: COMPLEX PARTIAL SEIZURES
     Route: 048
     Dates: start: 20140425
  3. SABRIL     (TABLET) [Suspect]
     Indication: EPILEPSY
     Route: 048
     Dates: start: 20130425
  4. VIMPAT [Concomitant]
     Indication: PRODUCT USED FOR UNKNOWN INDICATION
  5. LAMICTAL [Concomitant]
     Indication: PRODUCT USED FOR UNKNOWN INDICATION

REACTIONS (7)
  - Convulsion [Unknown]
  - Communication disorder [Not Recovered/Not Resolved]
  - Abasia [Not Recovered/Not Resolved]
  - Neurological symptom [Unknown]
  - Balance disorder [Not Recovered/Not Resolved]
  - Dyskinesia [Recovered/Resolved]
  - Agitation [Recovered/Resolved]
